FAERS Safety Report 5578799-0 (Version None)
Quarter: 2007Q4

REPORT INFORMATION
  Report Type: 
  Country: None (occurrence: None)
  Receive Date: 20071228
  Receipt Date: 20071228
  Transmission Date: 20080405
  Serious: No
  Sender: FDA-Public Use
  Company Number: None

PATIENT
  Age: 53 Year
  Sex: Male

DRUGS (1)
  1. BUPIVACAINE [Suspect]
     Dosage: .25%MG  ONCE  IV
     Route: 042
     Dates: start: 20071030, end: 20071030

REACTIONS (1)
  - GRAND MAL CONVULSION [None]
